FAERS Safety Report 10745392 (Version 1)
Quarter: 2015Q1

REPORT INFORMATION
  Report Type: Spontaneous
  Country: US (occurrence: None)
  Receive Date: 20150127
  Receipt Date: 20150127
  Transmission Date: 20150721
  Serious: No
  Sender: FDA-Public Use
  Company Number: None

PATIENT
  Age: 52 Year
  Sex: Male
  Weight: 317 kg

DRUGS (9)
  1. GLIMEPIRIDE. [Suspect]
     Active Substance: GLIMEPIRIDE
     Indication: DIABETES MELLITUS
     Dosage: 2 MG 1 ONCE DAILY, 1 PILL ONCE A DAY, BY MOUTH
     Route: 048
     Dates: start: 20141028, end: 20150115
  2. LYRICA [Concomitant]
     Active Substance: PREGABALIN
  3. DICYCLOMINE [Concomitant]
     Active Substance: DICYCLOMINE HYDROCHLORIDE
  4. TOPROL XL [Concomitant]
     Active Substance: METOPROLOL SUCCINATE
  5. JANUVIA [Concomitant]
     Active Substance: SITAGLIPTIN PHOSPHATE
  6. NEXIUM [Concomitant]
     Active Substance: ESOMEPRAZOLE MAGNESIUM
  7. NITROSTA [Concomitant]
  8. GLIMPIRIDE [Concomitant]
  9. PRAVACHOL [Concomitant]
     Active Substance: PRAVASTATIN SODIUM

REACTIONS (4)
  - Product substitution issue [None]
  - Nasopharyngitis [None]
  - Blood glucose increased [None]
  - Influenza [None]

NARRATIVE: CASE EVENT DATE: 20141030
